FAERS Safety Report 10045297 (Version 3)
Quarter: 2014Q2

REPORT INFORMATION
  Report Type: Spontaneous
  Country: ES (occurrence: ES)
  Receive Date: 20140328
  Receipt Date: 20140607
  Transmission Date: 20141212
  Serious: Yes (Other)
  Sender: FDA-Public Use
  Company Number: ES-AMGEN-ESPSP2014020719

PATIENT
  Age: 79 Year
  Sex: Female
  Weight: 64 kg

DRUGS (8)
  1. PROLIA [Suspect]
     Indication: OSTEOPOROSIS
     Dosage: 60 MG, Q6MO
     Route: 058
     Dates: start: 201301
  2. IXIA [Concomitant]
     Dosage: 40 MG, QD
  3. MANIDON HTA [Concomitant]
     Dosage: 1-0-1/2
  4. DOXAZOSIN [Concomitant]
     Dosage: 2 OR 4 MG
  5. HYDROCHLOROTHIAZIDE [Concomitant]
     Dosage: 25 MG, 1/2 EVERY 2 DAY
  6. SIMVASTATIN [Concomitant]
     Dosage: 20 MG, QD
  7. IDEOS [Concomitant]
     Dosage: UNK UNK, QD
  8. HIDROFEROL [Concomitant]
     Dosage: UNK UNK, QMO

REACTIONS (3)
  - Hepatitis C [Unknown]
  - Transaminases increased [Unknown]
  - Flank pain [Unknown]
